FAERS Safety Report 24833682 (Version 2)
Quarter: 2025Q1

REPORT INFORMATION
  Report Type: Spontaneous
  Country: US (occurrence: US)
  Receive Date: 20250113
  Receipt Date: 20250127
  Transmission Date: 20250408
  Serious: Yes (Other)
  Sender: CIPLA
  Company Number: US-CIPLA LTD.-2024US15368

PATIENT

DRUGS (8)
  1. TOPIRAMATE [Suspect]
     Active Substance: TOPIRAMATE
     Indication: Blindness
     Dosage: 25 MILLIGRAM, QD (FOR FIRST TWO WEEKS)
     Route: 065
     Dates: start: 202409
  2. TOPIRAMATE [Suspect]
     Active Substance: TOPIRAMATE
     Dosage: 50 MILLIGRAM, BID
     Route: 065
  3. TOPIRAMATE [Suspect]
     Active Substance: TOPIRAMATE
     Route: 065
     Dates: start: 202409, end: 20241112
  4. OMEPRAZOLE [Concomitant]
     Active Substance: OMEPRAZOLE
     Indication: Gastrooesophageal reflux disease
     Dosage: 10 MILLIGRAM, QD ( IN THE MORNING) (15-20 YEARS AGO)
     Route: 065
  5. BENAZEPRIL [Concomitant]
     Active Substance: BENAZEPRIL HYDROCHLORIDE
     Indication: Blood pressure abnormal
     Dosage: 5 MILLIGRAM, QD (IN THE MORNING) (12 TO 14 YEARS)
     Route: 065
  6. METFORMIN [Concomitant]
     Active Substance: METFORMIN HYDROCHLORIDE
     Indication: Product used for unknown indication
     Dosage: 500 MILLIGRAM, BID (IN THE MORNING AND NIGHT)
     Route: 065
  7. ELIQUIS [Concomitant]
     Active Substance: APIXABAN
     Indication: Cardiac disorder
     Dosage: 5 MILLIGRAM, BID (IN THE MORNING AND NIGHT)
     Route: 065
  8. ATORVASTATIN [Concomitant]
     Active Substance: ATORVASTATIN
     Indication: Product used for unknown indication
     Dosage: 10 MILLIGRAM, QD (ONCE BEFORE BED) (15 TO 20 YEARS)
     Route: 065

REACTIONS (7)
  - Mental impairment [Unknown]
  - Off label use [Unknown]
  - Disease progression [Unknown]
  - Thinking abnormal [Not Recovered/Not Resolved]
  - Initial insomnia [Unknown]
  - Visual acuity reduced [Not Recovered/Not Resolved]
  - Fatigue [Unknown]

NARRATIVE: CASE EVENT DATE: 20240101
